FAERS Safety Report 15434709 (Version 1)
Quarter: 2018Q3

REPORT INFORMATION
  Report Type: Spontaneous
  Country: US (occurrence: US)
  Receive Date: 20180921
  Receipt Date: 20180921
  Transmission Date: 20181010
  Serious: No
  Sender: FDA-Public Use
  Company Number: None

PATIENT
  Age: 75 Year
  Sex: Female
  Weight: 51.71 kg

DRUGS (2)
  1. CIMZIA [Suspect]
     Active Substance: CERTOLIZUMAB PEGOL
     Indication: RHEUMATOID ARTHRITIS
     Dosage: INJECT 400MG (2 VIALS) SUBCUTANEOUSLY AT WEEKS 0, 2 AND 4 AS DIRECTED ^REFRIGERATE! DO NOT FREEZE!^
     Route: 058
     Dates: start: 201801
  2. CIMZIA [Suspect]
     Active Substance: CERTOLIZUMAB PEGOL
     Indication: SENILE OSTEOPOROSIS
     Dosage: INJECT 400MG (2 VIALS) SUBCUTANEOUSLY AT WEEKS 0, 2 AND 4 AS DIRECTED ^REFRIGERATE! DO NOT FREEZE!^
     Route: 058
     Dates: start: 201801

REACTIONS (1)
  - Pain [None]
